FAERS Safety Report 7035515-3 (Version None)
Quarter: 2010Q4

REPORT INFORMATION
  Report Type: 
  Country: None (occurrence: None)
  Receive Date: 20101008
  Receipt Date: 20100930
  Transmission Date: 20110411
  Serious: Yes (Other)
  Sender: FDA-Public Use
  Company Number: GB-PFIZER INC-2010120648

PATIENT
  Age: 39 Year
  Sex: Female
  Weight: 109.6 kg

DRUGS (2)
  1. DEPO-MEDROL [Suspect]
     Dosage: UNK
     Dates: start: 20100803, end: 20100803
  2. DEPO-PROVERA [Suspect]
     Dosage: UNK
     Route: 030
     Dates: start: 20100601, end: 20100803

REACTIONS (3)
  - DYSPNOEA [None]
  - NAUSEA [None]
  - OCULAR HYPERAEMIA [None]
